FAERS Safety Report 25316893 (Version 2)
Quarter: 2025Q2

REPORT INFORMATION
  Report Type: Spontaneous
  Country: JP (occurrence: JP)
  Receive Date: 20250515
  Receipt Date: 20250617
  Transmission Date: 20250717
  Serious: Yes (Disabling, Other)
  Sender: MERCK SHARP & DOHME LLC
  Company Number: JP-009507513-2284926

PATIENT
  Age: 6 Decade
  Sex: Female

DRUGS (3)
  1. KEYTRUDA [Suspect]
     Active Substance: PEMBROLIZUMAB
     Indication: Cervix carcinoma stage III
     Dosage: 200MG EVERY 3 WEEKS
     Route: 041
     Dates: start: 20250310
  2. CISPLATIN [Concomitant]
     Active Substance: CISPLATIN
     Indication: Cervix carcinoma stage III
     Dosage: 40 MG/M2, ONCE EVERY WEEK
     Route: 041
     Dates: start: 20250310, end: 202503
  3. CISPLATIN [Concomitant]
     Active Substance: CISPLATIN
     Indication: Cervix carcinoma stage III
     Dosage: 40 MG/M2, ONCE EVERY WEEK
     Route: 041
     Dates: start: 20250328, end: 20250428

REACTIONS (4)
  - Hydronephrosis [Recovered/Resolved with Sequelae]
  - Pyrexia [Recovering/Resolving]
  - Bladder hypertrophy [Recovering/Resolving]
  - Renal impairment [Recovering/Resolving]

NARRATIVE: CASE EVENT DATE: 20250314
